FAERS Safety Report 13488139 (Version 1)
Quarter: 2017Q2

REPORT INFORMATION
  Report Type: Spontaneous
  Country: US (occurrence: US)
  Receive Date: 20170426
  Receipt Date: 20170426
  Transmission Date: 20170830
  Serious: No
  Sender: FDA-Public Use
  Company Number: US-ALKERMES INC.-ALK-2016-002728

PATIENT
  Age: 31 Year
  Sex: Female
  Weight: 68.93 kg

DRUGS (5)
  1. VIVITROL [Suspect]
     Active Substance: NALTREXONE
     Indication: DRUG USE DISORDER
     Dosage: 380 MG, QMO
     Route: 030
     Dates: start: 201605
  2. ANTIDEPRESSANTS [Concomitant]
     Active Substance: UNSPECIFIED INGREDIENT
     Indication: DEPRESSION
     Dosage: UNK
  3. HERBAL EXTRACT [Concomitant]
     Indication: STRESS
     Dosage: UNK
  4. CONTRACEPTIVES [Interacting]
     Active Substance: UNSPECIFIED INGREDIENT
     Indication: CONTRACEPTION
     Dosage: UNK
     Route: 065
  5. HERBAL EXTRACT [Concomitant]
     Indication: DEPRESSION

REACTIONS (8)
  - Injection site pain [Recovered/Resolved]
  - Pregnancy [Unknown]
  - Drug interaction [Unknown]
  - Depression [Recovered/Resolved]
  - Injection site reaction [Recovered/Resolved]
  - Feeling abnormal [Unknown]
  - Injection site erythema [Recovered/Resolved]
  - Vomiting [Unknown]

NARRATIVE: CASE EVENT DATE: 201606
